FAERS Safety Report 6256831-9 (Version None)
Quarter: 2009Q3

REPORT INFORMATION
  Report Type: 
  Country: None (occurrence: None)
  Receive Date: 20090706
  Receipt Date: 20090624
  Transmission Date: 20100115
  Serious: Yes (Other)
  Sender: FDA-Public Use
  Company Number: PHHY2009BR25825

PATIENT
  Sex: Male
  Weight: 70 kg

DRUGS (5)
  1. TEGRETOL [Suspect]
     Dosage: 200 MG, BID
     Route: 048
  2. TEGRETOL [Suspect]
     Dosage: 400 MG, BID
  3. CARBAMAZEPINE [Suspect]
     Dosage: 200 MG, BID
     Dates: start: 20040101
  4. CARBAMAZEPINE [Suspect]
     Dosage: 200 MG 2 TABS, TID
  5. PHENOBARBITAL [Concomitant]
     Dosage: 100 MG, UNK

REACTIONS (1)
  - CONVULSION [None]
